FAERS Safety Report 10359796 (Version 2)
Quarter: 2014Q4

REPORT INFORMATION
  Report Type: Spontaneous
  Country: US (occurrence: US)
  Receive Date: 20140804
  Receipt Date: 20141017
  Transmission Date: 20150528
  Serious: Yes (Other)
  Sender: FDA-Public Use
  Company Number: US-RB PHARMACEUTICALS LIMITED-RB-70185-2014

PATIENT

DRUGS (1)
  1. SUBOXONE [Suspect]
     Active Substance: BUPRENORPHINE HYDROCHLORIDE\NALOXONE HYDROCHLORIDE
     Indication: PRODUCT USED FOR UNKNOWN INDICATION
     Dosage: 2 SUBOXONE TABLETS IN THE MORNING
     Route: 065
     Dates: end: 2014

REACTIONS (10)
  - Upper limb fracture [Not Recovered/Not Resolved]
  - Malaise [Not Recovered/Not Resolved]
  - Rib fracture [Unknown]
  - Lower limb fracture [Unknown]
  - Suicidal ideation [Not Recovered/Not Resolved]
  - Rhinorrhoea [Not Recovered/Not Resolved]
  - Fall [Recovered/Resolved]
  - Vomiting [Not Recovered/Not Resolved]
  - Skull fracture [Unknown]
  - Diarrhoea [Not Recovered/Not Resolved]

NARRATIVE: CASE EVENT DATE: 2014
